FAERS Safety Report 5500933-9 (Version None)
Quarter: 2007Q4

REPORT INFORMATION
  Report Type: 
  Country: None (occurrence: None)
  Receive Date: 20071029
  Receipt Date: 20071019
  Transmission Date: 20080405
  Serious: Yes (Other)
  Sender: FDA-Public Use
  Company Number: PHBS2007TW16999

PATIENT
  Age: 71 Year
  Sex: Female

DRUGS (2)
  1. ZOMETA [Suspect]
     Indication: BREAST CANCER
     Dosage: 4 MG/Q4W
     Route: 042
     Dates: start: 20060407, end: 20070830
  2. XELODA [Concomitant]
     Dates: start: 20060929

REACTIONS (1)
  - OSTEONECROSIS [None]
